FAERS Safety Report 9675085 (Version 1)
Quarter: 2013Q4

REPORT INFORMATION
  Report Type: Report from Study
  Country: US (occurrence: US)
  Receive Date: 20131107
  Receipt Date: 20131107
  Transmission Date: 20140711
  Serious: Yes (Other)
  Sender: FDA-Public Use
  Company Number: US-ROCHE-1299391

PATIENT
  Sex: Male

DRUGS (5)
  1. LUCENTIS [Suspect]
     Indication: MACULAR OEDEMA
     Dosage: OS
     Route: 050
  2. LUCENTIS [Suspect]
     Indication: UVEITIS
  3. AVASTIN [Suspect]
     Indication: PRODUCT USED FOR UNKNOWN INDICATION
     Route: 065
  4. METHOTREXATE [Concomitant]
     Dosage: WEEKLY
     Route: 048
  5. ALBUTEROL [Concomitant]
     Dosage: ACT HFA ARESOL;  1-2 PUFFS Q4
     Route: 048

REACTIONS (3)
  - Eye pruritus [Unknown]
  - Nausea [Unknown]
  - Excoriation [Unknown]
